FAERS Safety Report 4280236-3 (Version None)
Quarter: 2004Q1

REPORT INFORMATION
  Report Type: 
  Country: None (occurrence: None)
  Receive Date: 20040128
  Receipt Date: 20040122
  Transmission Date: 20041129
  Serious: Yes (Hospitalization)
  Sender: FDA-Public Use
  Company Number: US-ROCHE-357025

PATIENT
  Sex: Male

DRUGS (2)
  1. XENICAL [Suspect]
     Route: 048
     Dates: start: 20020615
  2. XENICAL [Suspect]
     Route: 048

REACTIONS (1)
  - BLOOD TRIGLYCERIDES INCREASED [None]
